FAERS Safety Report 4759915-7 (Version None)
Quarter: 2005Q3

REPORT INFORMATION
  Report Type: 
  Country: None (occurrence: None)
  Receive Date: 20050831
  Receipt Date: 20050817
  Transmission Date: 20060218
  Serious: Yes (Hospitalization, Other)
  Sender: FDA-Public Use
  Company Number: USA0508105821

PATIENT
  Age: 52 Year
  Sex: Male

DRUGS (6)
  1. CYMBALTA [Suspect]
     Dates: start: 20050809, end: 20050815
  2. TYLENOL [Concomitant]
  3. NEURONTIN [Concomitant]
  4. SKELAXIN [Concomitant]
  5. FLEXERIL [Concomitant]
  6. DARVOCET [Concomitant]

REACTIONS (8)
  - ALANINE AMINOTRANSFERASE INCREASED [None]
  - ASPARTATE AMINOTRANSFERASE INCREASED [None]
  - BILIRUBIN CONJUGATED INCREASED [None]
  - BLOOD ALBUMIN DECREASED [None]
  - BLOOD ALKALINE PHOSPHATASE INCREASED [None]
  - BLOOD BILIRUBIN INCREASED [None]
  - OCULAR ICTERUS [None]
  - PROTEIN TOTAL DECREASED [None]
